FAERS Safety Report 6343677-6 (Version None)
Quarter: 2009Q3

REPORT INFORMATION
  Report Type: 
  Country: None (occurrence: None)
  Receive Date: 20090903
  Receipt Date: 20090903
  Transmission Date: 20100115
  Serious: No
  Sender: FDA-Public Use
  Company Number: None

PATIENT
  Sex: Female
  Weight: 54.4316 kg

DRUGS (1)
  1. MIRAPEX [Suspect]
     Indication: RESTLESS LEGS SYNDROME
     Dosage: 1 TAB 2-3 HRS BEFORE BED
     Dates: start: 20090818

REACTIONS (3)
  - INSOMNIA [None]
  - NO THERAPEUTIC RESPONSE [None]
  - PSYCHOMOTOR HYPERACTIVITY [None]
